FAERS Safety Report 9495017 (Version 2)
Quarter: 2013Q3

REPORT INFORMATION
  Report Type: Spontaneous
  Country: US (occurrence: None)
  Receive Date: 20130828
  Receipt Date: 20130912
  Transmission Date: 20140515
  Serious: Yes (Other)
  Sender: FDA-Public Use
  Company Number: JPI-P-034630

PATIENT
  Age: 45 Year
  Sex: Male

DRUGS (3)
  1. XYREM [Suspect]
     Indication: NARCOLEPSY
     Dosage: 3GM (1.5GM 2 IN 1D) ORAL
     Route: 048
     Dates: start: 20081126
  2. ARMODAFINIL [Concomitant]
  3. PROTRIPTYLINE [Concomitant]

REACTIONS (6)
  - Blindness transient [None]
  - Headache [None]
  - Nuclear magnetic resonance imaging abnormal [None]
  - Product taste abnormal [None]
  - Nuclear magnetic resonance imaging abnormal [None]
  - Nephrolithiasis [None]
